FAERS Safety Report 19639937 (Version 1)
Quarter: 2021Q3

REPORT INFORMATION
  Report Type: Report from Study
  Country: GB (occurrence: GB)
  Receive Date: 20210730
  Receipt Date: 20210730
  Transmission Date: 20211014
  Serious: Yes (Other)
  Sender: FDA-Public Use
  Company Number: GB-MYLANLABS-2021M1045781

PATIENT
  Age: 49 Year
  Sex: Female

DRUGS (33)
  1. LETROZOLE. [Suspect]
     Active Substance: LETROZOLE
     Indication: HER2 POSITIVE BREAST CANCER
     Dosage: 2.5 MG, DAILY
     Route: 048
     Dates: start: 20160308
  2. MICONAZOLE. [Concomitant]
     Active Substance: MICONAZOLE
     Dosage: 20 MILLIGRAM
     Route: 048
     Dates: start: 20170918, end: 20170920
  3. MIGRALEVE YELLOW [Concomitant]
     Dosage: UNK
  4. ZOLEDRONIC ACID [Concomitant]
     Active Substance: ZOLEDRONIC ACID
     Dosage: 4 MILLIGRAM
     Dates: start: 20151022, end: 20170713
  5. DOCETAXEL. [Suspect]
     Active Substance: DOCETAXEL
     Indication: HER2 POSITIVE BREAST CANCER
     Dosage: 132 MILLIGRAM, LOADING DOSE
     Route: 042
     Dates: start: 20151022, end: 20151022
  6. PERTUZUMAB. [Suspect]
     Active Substance: PERTUZUMAB
     Indication: BREAST CANCER METASTATIC
     Dosage: 420 MILLIGRAM, Q3W
     Route: 042
     Dates: start: 20151120, end: 20151120
  7. HALOPERIDOL. [Concomitant]
     Active Substance: HALOPERIDOL
     Dosage: 1.5 MILLIGRAM
     Route: 058
     Dates: start: 20170919, end: 20170920
  8. HYDROCORTISONE. [Concomitant]
     Active Substance: HYDROCORTISONE
     Indication: PROPHYLAXIS
     Dosage: 100 MG, 3X/DAY (0.33 D)
     Route: 042
     Dates: start: 20151022, end: 20160222
  9. NYSTATIN. [Concomitant]
     Active Substance: NYSTATIN
     Dosage: UNK, QID
     Route: 048
     Dates: start: 20170904, end: 20170919
  10. LETROZOLE. [Suspect]
     Active Substance: LETROZOLE
     Indication: BREAST CANCER METASTATIC
     Dosage: UNK
  11. PERTUZUMAB. [Suspect]
     Active Substance: PERTUZUMAB
     Indication: HER2 POSITIVE BREAST CANCER
     Dosage: 840 MILLIGRAM, LOADING DOSE
     Route: 042
     Dates: start: 20151023, end: 20151023
  12. CLOTRIMAZOLE. [Concomitant]
     Active Substance: CLOTRIMAZOLE
     Dosage: UNK, TID
     Route: 061
     Dates: start: 20170918, end: 20170920
  13. DEXAMETHASONE. [Concomitant]
     Active Substance: DEXAMETHASONE
     Dosage: 8 MG, 3X/DAY (0.33D)
     Route: 048
     Dates: start: 20170803, end: 20170809
  14. GLYCOPYRRONIUM [Concomitant]
     Active Substance: GLYCOPYRRONIUM
     Dosage: 400 MICROGRAM
     Route: 058
     Dates: start: 20170919, end: 20170920
  15. ONDANSETRON [Concomitant]
     Active Substance: ONDANSETRON
     Dosage: 8 MILLIGRAM, BID
     Route: 048
     Dates: start: 20170809, end: 20170812
  16. TRIMETHOPRIM. [Concomitant]
     Active Substance: TRIMETHOPRIM
     Dosage: 50 MG, UNK
     Dates: start: 20170915, end: 20170919
  17. DOCETAXEL. [Suspect]
     Active Substance: DOCETAXEL
     Indication: BREAST CANCER METASTATIC
     Dosage: 108 MILLIGRAM, Q3W
     Route: 042
     Dates: start: 20151120
  18. CALCICHEW [Concomitant]
     Active Substance: CALCIUM CARBONATE
     Dosage: UNK
     Dates: start: 20151231, end: 20170919
  19. ZOPICLONE [Concomitant]
     Active Substance: ZOPICLONE
     Dosage: 3.75 MG, UNK
     Route: 048
     Dates: start: 20170825, end: 20170919
  20. TRASTUZUMAB. [Suspect]
     Active Substance: TRASTUZUMAB
     Indication: BREAST CANCER METASTATIC
     Dosage: 525 MILLIGRAM, LOADING DOSE
     Route: 042
     Dates: start: 20151023, end: 20151023
  21. TRASTUZUMAB. [Suspect]
     Active Substance: TRASTUZUMAB
     Indication: HER2 POSITIVE BREAST CANCER
     Dosage: 400 MILLIGRAM, MAINTENANCE DOSE
     Route: 042
     Dates: start: 20151120, end: 20151120
  22. CHLORAMPHENICOL [Concomitant]
     Active Substance: CHLORAMPHENICOL
     Dosage: UNK
     Dates: start: 20170918, end: 20170920
  23. DEXAMETHASONE. [Concomitant]
     Active Substance: DEXAMETHASONE
     Dosage: 4 MG, 2X/DAY (0.5 DAY)
     Route: 048
     Dates: start: 20170809, end: 20170919
  24. CHLORPHENIRAMINE                   /00072501/ [Concomitant]
     Active Substance: CHLORPHENIRAMINE
     Indication: PROPHYLAXIS
     Dosage: 100 MILLIGRAM, FREQ:.33 D;
     Route: 042
     Dates: start: 20151022, end: 20160222
  25. DEXAMETHASONE. [Concomitant]
     Active Substance: DEXAMETHASONE
     Indication: PROPHYLAXIS
     Dosage: 8 MILLIGRAM
     Route: 048
     Dates: start: 20151210, end: 20160222
  26. HALOPERIDOL. [Concomitant]
     Active Substance: HALOPERIDOL
     Dosage: 1.5 MG, 2X/DAY
     Route: 048
     Dates: start: 20170810, end: 20170909
  27. LANSOPRAZOLE. [Concomitant]
     Active Substance: LANSOPRAZOLE
     Indication: PROPHYLAXIS
     Dosage: 30 MILLIGRAM
     Route: 048
     Dates: start: 20170728, end: 20170905
  28. MORPHINE SULPHATE [Concomitant]
     Active Substance: MORPHINE SULFATE
     Dosage: 2.5 MG, UNK
     Route: 048
     Dates: start: 20170918, end: 20170920
  29. CHLORPHENIRAMINE                   /00072501/ [Concomitant]
     Active Substance: CHLORPHENIRAMINE
     Dosage: 100 MG, 3X/DAY (0.33D)
     Route: 042
     Dates: start: 20151022, end: 20160222
  30. DEXAMETHASONE. [Concomitant]
     Active Substance: DEXAMETHASONE
     Dosage: 2 MILLIGRAM
     Route: 048
     Dates: start: 20170728, end: 20170803
  31. DOMPERIDONE [Concomitant]
     Active Substance: DOMPERIDONE
     Dosage: 10 MG, 2X/DAY (0.5DAY)
     Route: 048
     Dates: start: 20170810, end: 20170919
  32. MIDAZOLAM. [Concomitant]
     Active Substance: MIDAZOLAM
     Dosage: 2.5 MILLIGRAM
     Route: 058
     Dates: start: 20170918, end: 20170920
  33. ONDANSETRON [Concomitant]
     Active Substance: ONDANSETRON
     Dosage: 8 MG, 2X/DAY (0.5 DAY)
     Route: 048
     Dates: start: 20170809, end: 20170812

REACTIONS (2)
  - Neuropathy peripheral [Recovered/Resolved]
  - Insomnia [Recovered/Resolved]

NARRATIVE: CASE EVENT DATE: 201705
